FAERS Safety Report 14538346 (Version 1)
Quarter: 2018Q1

REPORT INFORMATION
  Report Type: Spontaneous
  Country: IT (occurrence: IT)
  Receive Date: 20180216
  Receipt Date: 20180216
  Transmission Date: 20180509
  Serious: Yes (Death)
  Sender: FDA-Public Use
  Company Number: IT-CONCORDIA PHARMACEUTICALS INC.-E2B_00009923

PATIENT
  Age: 82 Year
  Sex: Female

DRUGS (4)
  1. LANSOPRAZOLO ABC 15 MG CAPSULE RIGIDE GASTRORESISTENT I [Suspect]
     Active Substance: LANSOPRAZOLE
     Route: 048
  2. SOLOSA 2 MG, COMPRESSE [Suspect]
     Active Substance: GLIMEPIRIDE
     Route: 048
  3. GLUCOPHAGE [Suspect]
     Active Substance: METFORMIN HYDROCHLORIDE
     Route: 048
  4. LANOXIN [Suspect]
     Active Substance: DIGOXIN
     Route: 048

REACTIONS (4)
  - Acute kidney injury [Fatal]
  - Metabolic acidosis [Fatal]
  - Respiratory distress [Fatal]
  - Sopor [Fatal]

NARRATIVE: CASE EVENT DATE: 20150725
